FAERS Safety Report 4963060-5 (Version None)
Quarter: 2006Q2

REPORT INFORMATION
  Report Type: 
  Country: None (occurrence: None)
  Receive Date: 20060405
  Receipt Date: 20051219
  Transmission Date: 20061013
  Serious: Yes (Other)
  Sender: FDA-Public Use
  Company Number: US-GLAXOSMITHKLINE-A0586300A

PATIENT
  Age: 5 Month
  Sex: Female
  Weight: 7.2 kg

DRUGS (2)
  1. CEFTIN [Suspect]
     Indication: SINUSITIS
     Dosage: 1ML TWICE PER DAY
     Route: 048
     Dates: start: 20051215
  2. ZANTAC [Concomitant]
     Dosage: 1ML TWICE PER DAY
     Route: 048

REACTIONS (8)
  - ABDOMINAL PAIN [None]
  - ABDOMINAL PAIN UPPER [None]
  - CRYING [None]
  - FLATULENCE [None]
  - GASTROENTERITIS [None]
  - HAEMATOCHEZIA [None]
  - IRRITABILITY [None]
  - PHARMACEUTICAL PRODUCT COMPLAINT [None]
